FAERS Safety Report 25645886 (Version 1)
Quarter: 2025Q3

REPORT INFORMATION
  Report Type: Spontaneous
  Country: GB (occurrence: None)
  Receive Date: 20250804
  Receipt Date: 20250804
  Transmission Date: 20251020
  Serious: Yes (Other)
  Sender: FDA-CTU
  Company Number: None

PATIENT
  Age: 48 Year
  Sex: Female
  Weight: 63.5 kg

DRUGS (13)
  1. PAROXETINE HYDROCHLORIDE [Suspect]
     Active Substance: PAROXETINE HYDROCHLORIDE
     Indication: Anxiety
     Dosage: FREQUENCY : DAILY;?
     Route: 048
     Dates: start: 20010112, end: 20050108
  2. PAROXETINE HYDROCHLORIDE [Suspect]
     Active Substance: PAROXETINE HYDROCHLORIDE
     Indication: Depression
     Dates: start: 20010112, end: 20050108
  3. PROZAC [Suspect]
     Active Substance: FLUOXETINE HYDROCHLORIDE
  4. Several herbs and supplements being used currently [Concomitant]
  5. St. John^s Wort (stopped) [Concomitant]
  6. Promethazine Hydrochloride (sleep issues) [Concomitant]
  7. Diphenhydramine (sleep issues) [Concomitant]
  8. MAGNESIUM [Concomitant]
     Active Substance: MAGNESIUM
  9. VALERIAN [Concomitant]
     Active Substance: VALERIAN
  10. passiflora [Concomitant]
  11. OMEGA 3 [Concomitant]
     Active Substance: CAPSAICIN
  12. VITAMIN C [Concomitant]
     Active Substance: ASCORBIC ACID
  13. paracetamol for migraines - Occasional [Concomitant]

REACTIONS (27)
  - Withdrawal syndrome [None]
  - Tachyphrenia [None]
  - Intrusive thoughts [None]
  - Insomnia [None]
  - Sleep disorder [None]
  - Terminal insomnia [None]
  - Feeling abnormal [None]
  - Emotional distress [None]
  - Fear [None]
  - Emotional disorder [None]
  - Impulsive behaviour [None]
  - Affective disorder [None]
  - Anger [None]
  - Stress [None]
  - Decreased appetite [None]
  - Nonspecific reaction [None]
  - Tension headache [None]
  - Photopsia [None]
  - Vertigo [None]
  - Depression [None]
  - Palpitations [None]
  - Abdominal pain upper [None]
  - Disturbance in attention [None]
  - Influenza like illness [None]
  - Fatigue [None]
  - Premenstrual syndrome [None]
  - Agitation [None]

NARRATIVE: CASE EVENT DATE: 20050108
